FAERS Safety Report 25843942 (Version 2)
Quarter: 2025Q4

REPORT INFORMATION
  Report Type: Spontaneous
  Country: EU (occurrence: EU)
  Receive Date: 20250925
  Receipt Date: 20251120
  Transmission Date: 20260118
  Serious: Yes (Other)
  Sender: VIIV
  Company Number: EU-GSKCCFEMEA-Case-02584473_AE-102994

PATIENT
  Age: 65 Year
  Sex: Male
  Weight: 76.6 kg

DRUGS (11)
  1. DOVATO [Interacting]
     Active Substance: DOLUTEGRAVIR SODIUM\LAMIVUDINE
     Indication: HIV infection
     Dosage: UNK
  2. TIVICAY [Interacting]
     Active Substance: DOLUTEGRAVIR SODIUM
     Indication: HIV infection
     Dosage: UNK
  3. XTANDI [Interacting]
     Active Substance: ENZALUTAMIDE
     Indication: Hormone-dependent prostate cancer
     Dosage: 160 MG, QD
  4. GALLIUM GA-68 GOZETOTIDE [Interacting]
     Active Substance: GALLIUM GA-68 GOZETOTIDE
     Indication: Hormone-dependent prostate cancer
     Dosage: 168.39 MBQ, SINGLE
  5. DEGARELIX [Interacting]
     Active Substance: DEGARELIX
     Indication: Product used for unknown indication
     Dosage: UNK
  6. TRAZODONE [Interacting]
     Active Substance: TRAZODONE HYDROCHLORIDE
     Indication: Product used for unknown indication
     Dosage: UNK
  7. SOLIFENACIN [Interacting]
     Active Substance: SOLIFENACIN
     Indication: Product used for unknown indication
     Dosage: UNK
  8. ECHINACEA PURPUREA WHOLE [Interacting]
     Active Substance: ECHINACEA PURPUREA WHOLE
     Indication: Product used for unknown indication
     Dosage: UNK
  9. OMEPRAZOLE [Interacting]
     Active Substance: OMEPRAZOLE
     Indication: Product used for unknown indication
     Dosage: UNK
  10. FLUOXETINE [Concomitant]
     Active Substance: FLUOXETINE HYDROCHLORIDE
     Indication: Product used for unknown indication
     Dosage: UNK
  11. VISTA CAL D [Concomitant]
     Indication: Product used for unknown indication
     Dosage: UNK

REACTIONS (3)
  - Cerebral amyloid angiopathy [Unknown]
  - Hormone-dependent prostate cancer [Unknown]
  - Drug interaction [Unknown]

NARRATIVE: CASE EVENT DATE: 20231029
